FAERS Safety Report 5224851-9 (Version None)
Quarter: 2007Q1

REPORT INFORMATION
  Report Type: 
  Country: None (occurrence: None)
  Receive Date: 20070126
  Receipt Date: 20070116
  Transmission Date: 20070707
  Serious: Yes (Hospitalization)
  Sender: FDA-Public Use
  Company Number: B0455040A

PATIENT
  Age: 64 Year
  Sex: Male

DRUGS (4)
  1. LAMICTAL [Suspect]
  2. CITALOPRAM HYDROBROMIDE [Suspect]
  3. CLONAZEPAM [Suspect]
  4. ARIPIPRAZOLE [Suspect]

REACTIONS (10)
  - BLOOD PRESSURE DECREASED [None]
  - BODY TEMPERATURE INCREASED [None]
  - BRUGADA SYNDROME [None]
  - ELECTROCARDIOGRAM QRS COMPLEX PROLONGED [None]
  - ELECTROCARDIOGRAM QT CORRECTED INTERVAL PROLONGED [None]
  - LOSS OF CONSCIOUSNESS [None]
  - MULTIPLE DRUG OVERDOSE [None]
  - QRS AXIS ABNORMAL [None]
  - RESPIRATORY DISTRESS [None]
  - THERAPEUTIC RESPONSE DECREASED [None]
